FAERS Safety Report 5695961-7 (Version None)
Quarter: 2008Q2

REPORT INFORMATION
  Report Type: 
  Country: None (occurrence: None)
  Receive Date: 20080407
  Receipt Date: 20080402
  Transmission Date: 20081010
  Serious: Yes (Hospitalization, Disabling)
  Sender: FDA-Public Use
  Company Number: JP-ASTRAZENECA-2008AP02336

PATIENT
  Age: 40 Year
  Sex: Male

DRUGS (1)
  1. OMEPRAL [Suspect]
     Indication: GASTRIC MUCOSAL LESION
     Dosage: UNKNOWN DOSE
     Route: 041

REACTIONS (1)
  - ELECTROCARDIOGRAM QT PROLONGED [None]
